FAERS Safety Report 17829379 (Version 2)
Quarter: 2021Q1

REPORT INFORMATION
  Report Type: Report from Study
  Country: MX (occurrence: MX)
  Receive Date: 20200527
  Receipt Date: 20210327
  Transmission Date: 20210419
  Serious: Yes (Hospitalization)
  Sender: FDA-Public Use
  Company Number: NVSC2020MX143346

PATIENT
  Sex: Female
  Weight: 65 kg

DRUGS (2)
  1. ACLASTA [Suspect]
     Active Substance: ZOLEDRONIC ACID
     Indication: OSTEOPOROSIS
     Dosage: 5 MG, ONCE/SINGLE (3 YEARS AGO)
     Route: 042
     Dates: start: 20110726
  2. VITAMIN D [Concomitant]
     Active Substance: VITAMIN D NOS
     Indication: PRODUCT USED FOR UNKNOWN INDICATION
     Dosage: 1 DF, QD
     Route: 048
     Dates: start: 20110726

REACTIONS (8)
  - Accident [Recovered/Resolved with Sequelae]
  - Upper limb fracture [Recovered/Resolved with Sequelae]
  - Rib fracture [Recovered/Resolved with Sequelae]
  - Lung perforation [Recovered/Resolved with Sequelae]
  - Gait disturbance [Unknown]
  - Drug ineffective [Unknown]
  - Arthralgia [Unknown]
  - Hip fracture [Recovered/Resolved with Sequelae]

NARRATIVE: CASE EVENT DATE: 2012
